FAERS Safety Report 9383590 (Version 1)
Quarter: 2013Q3

REPORT INFORMATION
  Report Type: Spontaneous
  Country: US (occurrence: US)
  Receive Date: 20130704
  Receipt Date: 20130704
  Transmission Date: 20140515
  Serious: No
  Sender: FDA-Public Use
  Company Number: US-PFIZER INC-2013196558

PATIENT
  Age: 69 Year
  Sex: Female
  Weight: 45.4 kg

DRUGS (8)
  1. CELEBREX [Suspect]
     Dosage: UNK
  2. DEPO-ESTRADIOL [Suspect]
     Dosage: UNK
  3. EFFEXOR [Suspect]
     Dosage: UNK
  4. NORVASC [Suspect]
     Dosage: UNK
  5. ZOLOFT [Suspect]
     Dosage: UNK
  6. NAMENDA [Concomitant]
     Dosage: 10 MG, UNK
  7. DEPAKOTE [Concomitant]
     Dosage: 500 MG, UNK
  8. TRAZODONE [Concomitant]
     Dosage: 100 MG, UNK

REACTIONS (2)
  - Back pain [Unknown]
  - Nasopharyngitis [Unknown]
